FAERS Safety Report 6520529-X (Version None)
Quarter: 2009Q4

REPORT INFORMATION
  Report Type: 
  Country: None (occurrence: None)
  Receive Date: 20091229
  Receipt Date: 20091224
  Transmission Date: 20100525
  Serious: Yes (Hospitalization)
  Sender: FDA-Public Use
  Company Number: B0620206A

PATIENT
  Sex: Male

DRUGS (4)
  1. FLONASE [Suspect]
     Indication: NASOPHARYNGITIS
     Dosage: 1PUFF THREE TIMES PER DAY
     Route: 055
     Dates: start: 20091111, end: 20091116
  2. AMOXICILLIN [Suspect]
     Indication: NASOPHARYNGITIS
     Dosage: 1G TWICE PER DAY
     Route: 048
     Dates: start: 20091111, end: 20091116
  3. PREDNISONE [Suspect]
     Indication: NASOPHARYNGITIS
     Dosage: 20MG TWICE PER DAY
     Route: 048
     Dates: start: 20091111, end: 20091116
  4. SEROPRAM [Suspect]
     Indication: NASOPHARYNGITIS
     Dosage: 2DROP PER DAY
     Route: 048
     Dates: start: 20091111, end: 20091116

REACTIONS (7)
  - DERMATITIS EXFOLIATIVE [None]
  - ENANTHEMA [None]
  - ERYTHEMA MULTIFORME [None]
  - ORAL DISORDER [None]
  - PRURIGO [None]
  - RASH MACULO-PAPULAR [None]
  - TOXIC SKIN ERUPTION [None]
